FAERS Safety Report 10244312 (Version 5)
Quarter: 2015Q1

REPORT INFORMATION
  Report Type: Spontaneous
  Country: US (occurrence: US)
  Receive Date: 20140618
  Receipt Date: 20150311
  Transmission Date: 20150720
  Serious: Yes (Disabling)
  Sender: FDA-Public Use
  Company Number: US-009507513-1406USA007342

PATIENT
  Sex: Male

DRUGS (1)
  1. PROPECIA [Suspect]
     Active Substance: FINASTERIDE
     Indication: ALOPECIA
     Dosage: 1 MG, QD
     Route: 048
     Dates: start: 20061130, end: 20090921

REACTIONS (17)
  - Musculoskeletal pain [Unknown]
  - Seasonal allergy [Unknown]
  - Anxiety [Not Recovered/Not Resolved]
  - Loss of libido [Not Recovered/Not Resolved]
  - Nervous system disorder [Not Recovered/Not Resolved]
  - Depression [Not Recovered/Not Resolved]
  - Cognitive disorder [Not Recovered/Not Resolved]
  - Fatigue [Unknown]
  - Insomnia [Unknown]
  - Sexual dysfunction [Not Recovered/Not Resolved]
  - Ejaculation failure [Not Recovered/Not Resolved]
  - Infertility [Unknown]
  - Malaise [Unknown]
  - Ejaculation disorder [Not Recovered/Not Resolved]
  - Genital herpes [Unknown]
  - Erectile dysfunction [Recovered/Resolved]
  - Allergy to animal [Unknown]

NARRATIVE: CASE EVENT DATE: 2007
